FAERS Safety Report 5209123-0 (Version None)
Quarter: 2007Q1

REPORT INFORMATION
  Report Type: 
  Country: None (occurrence: None)
  Receive Date: 20070111
  Receipt Date: 20070102
  Transmission Date: 20070707
  Serious: Yes (Hospitalization)
  Sender: FDA-Public Use
  Company Number: 15436

PATIENT
  Age: 62 Year
  Sex: Male

DRUGS (6)
  1. CARBOPLATIN [Suspect]
  2. GEMCITABINE [Suspect]
     Indication: LUNG NEOPLASM MALIGNANT
     Dates: start: 20061110
  3. DICLOFENAC SODIUM [Concomitant]
  4. SALBUTAMOL [Concomitant]
  5. TEMAZEPAM [Concomitant]
  6. TRAMADOL HCL [Concomitant]

REACTIONS (6)
  - C-REACTIVE PROTEIN INCREASED [None]
  - DYSURIA [None]
  - EYE PAIN [None]
  - HEADACHE [None]
  - IMMUNOSUPPRESSION [None]
  - VIRAL INFECTION [None]
